FAERS Safety Report 8125353-2 (Version None)
Quarter: 2012Q1

REPORT INFORMATION
  Report Type: 
  Country: None (occurrence: None)
  Receive Date: 20120209
  Receipt Date: 20120201
  Transmission Date: 20120608
  Serious: Yes (Other)
  Sender: FDA-Public Use
  Company Number: GR-GLAXOSMITHKLINE-A0965209A

PATIENT
  Sex: Male

DRUGS (11)
  1. DEXAMETHASONE [Suspect]
     Indication: MULTIPLE MYELOMA
     Route: 065
     Dates: start: 19980101, end: 19980101
  2. PREDNISONE [Suspect]
     Indication: MULTIPLE MYELOMA
     Route: 065
  3. IFOSFAMIDE [Suspect]
     Indication: MULTIPLE MYELOMA
     Route: 065
     Dates: start: 19980101, end: 19980101
  4. CARMUSTINE [Suspect]
     Indication: STEM CELL TRANSPLANT
     Route: 065
     Dates: start: 19980101, end: 19980101
  5. CYTARABINE [Suspect]
     Indication: STEM CELL TRANSPLANT
     Route: 065
     Dates: start: 19980101, end: 19980101
  6. MELPHALAN HYDROCHLORIDE [Suspect]
     Indication: MULTIPLE MYELOMA
     Route: 065
  7. CISPLATIN [Suspect]
     Indication: MULTIPLE MYELOMA
     Route: 065
     Dates: start: 19980101, end: 19980101
  8. ETOPOSIDE [Suspect]
     Indication: MULTIPLE MYELOMA
     Route: 065
     Dates: start: 19980101, end: 19980101
  9. RADIOTHERAPY [Suspect]
     Indication: HODGKIN'S DISEASE
     Dates: start: 20000101, end: 20010801
  10. INTERFERON ALFA [Suspect]
     Indication: MULTIPLE MYELOMA
     Route: 065
     Dates: end: 20050901
  11. CYCLOPHOSPHAMIDE [Suspect]
     Indication: STEM CELL TRANSPLANT
     Route: 065
     Dates: start: 19980101, end: 19980101

REACTIONS (3)
  - REFRACTORY CYTOPENIA WITH MULTILINEAGE DYSPLASIA [None]
  - PANCYTOPENIA [None]
  - MYELODYSPLASTIC SYNDROME [None]
